FAERS Safety Report 11250131 (Version 2)
Quarter: 2015Q3

REPORT INFORMATION
  Report Type: Spontaneous
  Country: US (occurrence: US)
  Receive Date: 20150708
  Receipt Date: 20150803
  Transmission Date: 20151125
  Serious: No
  Sender: FDA-Public Use
  Company Number: US-ELI_LILLY_AND_COMPANY-US200906003293

PATIENT
  Age: 48 Year
  Sex: Male

DRUGS (3)
  1. SYMBYAX [Suspect]
     Active Substance: FLUOXETINE HYDROCHLORIDE\OLANZAPINE
     Dosage: UNK, EACH EVENING
     Dates: start: 200905
  2. ZYPREXA [Suspect]
     Active Substance: OLANZAPINE
     Indication: BIPOLAR DISORDER
     Dosage: 7.5 MG, DAILY (1/D)
     Dates: start: 200810
  3. ABILIFY [Concomitant]
     Active Substance: ARIPIPRAZOLE

REACTIONS (4)
  - Hypersomnia [Unknown]
  - Insomnia [Unknown]
  - Emotional disorder [Unknown]
  - Fatigue [Unknown]

NARRATIVE: CASE EVENT DATE: 200905
